FAERS Safety Report 8721696 (Version 3)
Quarter: 2012Q4

REPORT INFORMATION
  Report Type: 
  Country: US (occurrence: US)
  Receive Date: 20120814
  Receipt Date: 20120926
  Transmission Date: 20130627
  Serious: Yes (Other)
  Sender: FDA-Public Use
  Company Number: US-SANOFI-AVENTIS-2012SA056393

PATIENT
  Age: 75 Year
  Sex: Male

DRUGS (10)
  1. PLAVIX [Suspect]
     Indication: STENT PLACEMENT
     Route: 048
     Dates: start: 20061110
  2. ESOMEPRAZOLE [Suspect]
     Indication: DRUG USE FOR UNKNOWN INDICATION
     Route: 065
     Dates: start: 2007
  3. GEMFIBROZIL [Concomitant]
  4. METFORMIN [Concomitant]
  5. GABAPENTIN [Concomitant]
  6. AMITRIPTYLINE [Concomitant]
  7. GLUCOSAMINE [Concomitant]
  8. VITAMIN D [Concomitant]
  9. TYLENOL [Concomitant]
  10. NAPROXEN [Concomitant]

REACTIONS (19)
  - Myocardial infarction [Unknown]
  - Arterial occlusive disease [Not Recovered/Not Resolved]
  - Fall [Unknown]
  - Rotator cuff syndrome [Unknown]
  - Ligament rupture [Unknown]
  - Interstitial lung disease [Unknown]
  - Emphysema [Unknown]
  - Aortic aneurysm [Not Recovered/Not Resolved]
  - Neck pain [Not Recovered/Not Resolved]
  - Musculoskeletal discomfort [Not Recovered/Not Resolved]
  - Tinnitus [Not Recovered/Not Resolved]
  - Prostatic disorder [Unknown]
  - Chest pain [Unknown]
  - Dyspnoea [Not Recovered/Not Resolved]
  - Dysphagia [Not Recovered/Not Resolved]
  - Regurgitation [Not Recovered/Not Resolved]
  - Pain in extremity [Unknown]
  - Dizziness [Not Recovered/Not Resolved]
  - Headache [Not Recovered/Not Resolved]
